FAERS Safety Report 7969122-2 (Version None)
Quarter: 2011Q4

REPORT INFORMATION
  Report Type: 
  Country: None (occurrence: None)
  Receive Date: 20111208
  Receipt Date: 20111101
  Transmission Date: 20120403
  Serious: No
  Sender: FDA-Public Use
  Company Number: USA/USA/11/0021786

PATIENT
  Age: 14 Year
  Sex: Female
  Weight: 37.195 kg

DRUGS (8)
  1. CIPROFLOXACIN [Concomitant]
  2. CELLCEPT [Concomitant]
  3. TACROLIMUS [Suspect]
     Indication: RENAL TRANSPLANT
     Dosage: 2 MG, 2 IN 1 D, ORAL, 4 MG, 2 IN 1 D, ORAL
     Route: 048
     Dates: start: 20110801
  4. TACROLIMUS [Suspect]
     Indication: RENAL TRANSPLANT
     Dosage: 2 MG, 2 IN 1 D, ORAL, 4 MG, 2 IN 1 D, ORAL
     Route: 048
     Dates: end: 20111008
  5. DITROPAN [Concomitant]
  6. PREDNISONE TAB [Concomitant]
  7. SODIUM BICARBONATE IN PLASTIC CONTAINER [Concomitant]
  8. BACTRIM [Concomitant]

REACTIONS (1)
  - DRUG INEFFECTIVE [None]
